FAERS Safety Report 15869549 (Version 1)
Quarter: 2019Q1

REPORT INFORMATION
  Report Type: Spontaneous
  Country: US (occurrence: US)
  Receive Date: 20190125
  Receipt Date: 20190125
  Transmission Date: 20190417
  Serious: Yes (Other)
  Sender: FDA-Public Use
  Company Number: US-PERNIX THERAPEUTICS-US-2019PER000009

PATIENT

DRUGS (1)
  1. MAGNESIUM OXIDE 400 MG [Suspect]
     Active Substance: MAGNESIUM OXIDE
     Indication: CONSTIPATION
     Dosage: 400 MG, QD
     Route: 048

REACTIONS (2)
  - Parathyroidectomy [Unknown]
  - Cough [Unknown]
